FAERS Safety Report 10362967 (Version 1)
Quarter: 2014Q1

REPORT INFORMATION
  Report Type: Spontaneous
  Country: US (occurrence: None)
  Receive Date: 20140306
  Receipt Date: 20140306
  Transmission Date: 20141002
  Serious: Yes (Hospitalization)
  Sender: FDA-Public Use
  Company Number: 163-21880-13106479

PATIENT
  Age: 62 Year
  Sex: Male
  Weight: 97.52 kg

DRUGS (12)
  1. REVLIMID (LENALIDOMIDE) (CAPSULES) [Suspect]
     Indication: PLASMA CELL MYELOMA
     Dosage: 25 MG, 14 IN 21 D, PO
     Route: 048
     Dates: start: 201308
  2. ATENOLOL (ATENOLOL) [Concomitant]
  3. ACYCLOVIR (ACICLOVIR) [Concomitant]
  4. CALCIUM +D (OS-CAL) [Concomitant]
  5. COMPAZINE (PROCHLORPERAZINE EDISYLATE) [Concomitant]
  6. CRESTOR (ROSUVASTATIN) [Concomitant]
  7. DECADRON (DEXAMETHASONE) [Concomitant]
  8. FUROSEMIDE (FUROSEMIDE) [Concomitant]
  9. HYDROCODONE/APAP (VICODIN) [Concomitant]
  10. POTASSIUM (POTASSIUM) [Concomitant]
  11. VELCADE (BORTEZOMIB) [Concomitant]
  12. WARFARIN (WARFARIN) [Concomitant]

REACTIONS (2)
  - Cardiac failure congestive [None]
  - Septic shock [None]
